FAERS Safety Report 21229888 (Version 3)
Quarter: 2022Q4

REPORT INFORMATION
  Report Type: Spontaneous
  Country: US (occurrence: US)
  Receive Date: 20220818
  Receipt Date: 20221025
  Transmission Date: 20230113
  Serious: No
  Sender: FDA-Public Use
  Company Number: US-ALKERMES INC.-ALK-2022-003921

PATIENT
  Age: 18 Year
  Sex: Female
  Weight: 61.043 kg

DRUGS (6)
  1. ARISTADA [Suspect]
     Active Substance: ARIPIPRAZOLE LAUROXIL
     Indication: Product use in unapproved indication
     Dosage: 441 MILLIGRAM, QMO
     Route: 030
     Dates: start: 20210828, end: 20220630
  2. ARISTADA [Suspect]
     Active Substance: ARIPIPRAZOLE LAUROXIL
     Indication: Psychotic behaviour
  3. ARIPIPRAZOLE [Concomitant]
     Active Substance: ARIPIPRAZOLE
     Indication: Schizoaffective disorder
     Dosage: 10 MILLIGRAM
     Route: 048
     Dates: start: 2022
  4. FLUOXETINE [Concomitant]
     Active Substance: FLUOXETINE HYDROCHLORIDE
     Indication: Depression
     Dosage: 60 MILLIGRAM
     Route: 048
     Dates: start: 20220209
  5. GABAPENTIN [Concomitant]
     Active Substance: GABAPENTIN
     Indication: Anxiety
     Dosage: 300 MILLIGRAM
     Route: 048
     Dates: start: 20220225
  6. REMERON [Concomitant]
     Active Substance: MIRTAZAPINE
     Indication: Somnolence
     Dosage: 30 MILLIGRAM, QHS
     Dates: start: 20220615

REACTIONS (1)
  - Off label use [Not Recovered/Not Resolved]

NARRATIVE: CASE EVENT DATE: 20210828
